FAERS Safety Report 14298146 (Version 1)
Quarter: 2017Q4

REPORT INFORMATION
  Report Type: Spontaneous
  Country: FR (occurrence: FR)
  Receive Date: 20171218
  Receipt Date: 20171218
  Transmission Date: 20180321
  Serious: Yes (Other)
  Sender: FDA-Public Use
  Company Number: FR-BRISTOL-MYERS SQUIBB COMPANY-BMS-2017-115353

PATIENT
  Sex: Male

DRUGS (1)
  1. BARACLUDE [Suspect]
     Active Substance: ENTECAVIR
     Indication: HEPATITIS B VIRUS TEST
     Dosage: 0.5 MG, UNK
     Route: 065
     Dates: start: 20091027

REACTIONS (2)
  - Urinary tract obstruction [Unknown]
  - Nephrolithiasis [Unknown]
